FAERS Safety Report 14797465 (Version 3)
Quarter: 2018Q2

REPORT INFORMATION
  Report Type: Spontaneous
  Country: JP (occurrence: JP)
  Receive Date: 20180424
  Receipt Date: 20180508
  Transmission Date: 20180711
  Serious: Yes (Hospitalization, Other)
  Sender: FDA-Public Use
  Company Number: JP-BRISTOL-MYERS SQUIBB COMPANY-BMS-2018-037259

PATIENT
  Age: 58 Year
  Sex: Male
  Weight: 60.5 kg

DRUGS (1)
  1. OPDIVO [Suspect]
     Active Substance: NIVOLUMAB
     Indication: MALIGNANT MELANOMA
     Dosage: 3 MG/KG, Q2WK
     Route: 041
     Dates: start: 201604

REACTIONS (3)
  - Adrenocorticotropic hormone deficiency [Unknown]
  - Thyroiditis [Unknown]
  - Hypercalcaemia [Recovering/Resolving]
